FAERS Safety Report 13072240 (Version 12)
Quarter: 2018Q2

REPORT INFORMATION
  Report Type: Spontaneous
  Country: US (occurrence: US)
  Receive Date: 20161229
  Receipt Date: 20180625
  Transmission Date: 20180711
  Serious: Yes (Other)
  Sender: FDA-Public Use
  Company Number: US-ACTELION-A-US2016-147506

PATIENT
  Age: 64 Year
  Sex: Male
  Weight: 85.71 kg

DRUGS (6)
  1. UPTRAVI [Suspect]
     Active Substance: SELEXIPAG
     Indication: PULMONARY ARTERIAL HYPERTENSION
     Dosage: 600 MCG, BID
     Route: 048
     Dates: start: 20180223
  2. LETAIRIS [Suspect]
     Active Substance: AMBRISENTAN
     Indication: PRODUCT USED FOR UNKNOWN INDICATION
     Dosage: 10 MG, QD
     Route: 065
     Dates: start: 20151223
  3. UPTRAVI [Suspect]
     Active Substance: SELEXIPAG
     Dosage: 400 MCG, BID
     Route: 048
     Dates: start: 20161017
  4. UPTRAVI [Suspect]
     Active Substance: SELEXIPAG
     Dosage: 400 MCG, QD
     Route: 048
  5. LETAIRIS [Suspect]
     Active Substance: AMBRISENTAN
     Dosage: 5 MG, QD
     Route: 048
  6. ADEMPAS [Suspect]
     Active Substance: RIOCIGUAT
     Indication: PRODUCT USED FOR UNKNOWN INDICATION
     Route: 065

REACTIONS (24)
  - Diarrhoea [Recovered/Resolved]
  - Dyspnoea [Unknown]
  - Muscle spasms [Recovering/Resolving]
  - Lung carcinoma cell type unspecified stage IV [Unknown]
  - Vomiting [Unknown]
  - Influenza [Recovered/Resolved]
  - Weight decreased [Unknown]
  - Arthralgia [Recovering/Resolving]
  - Nausea [Unknown]
  - Drug administration error [Unknown]
  - Malaise [Unknown]
  - Cough [Unknown]
  - Headache [Unknown]
  - Pyrexia [Unknown]
  - Therapeutic response decreased [Unknown]
  - Influenza like illness [Unknown]
  - Pain in jaw [Unknown]
  - Weight increased [Unknown]
  - Abdominal discomfort [Not Recovered/Not Resolved]
  - Feeling abnormal [Recovering/Resolving]
  - Decreased appetite [Recovering/Resolving]
  - Dizziness [Recovering/Resolving]
  - Hypotension [Unknown]
  - Rash [Recovered/Resolved]

NARRATIVE: CASE EVENT DATE: 201701
